FAERS Safety Report 10704201 (Version 3)
Quarter: 2015Q1

REPORT INFORMATION
  Report Type: Spontaneous
  Country: US (occurrence: US)
  Receive Date: 20150112
  Receipt Date: 20150312
  Transmission Date: 20150721
  Serious: Yes (Death)
  Sender: FDA-Public Use
  Company Number: US-JNJFOC-20150106243

PATIENT
  Age: 56 Year
  Sex: Female

DRUGS (4)
  1. IMBRUVICA [Suspect]
     Active Substance: IBRUTINIB
     Indication: CHRONIC LYMPHOCYTIC LEUKAEMIA
     Route: 048
     Dates: start: 20141113, end: 20141211
  2. IMBRUVICA [Suspect]
     Active Substance: IBRUTINIB
     Indication: CHRONIC LYMPHOCYTIC LEUKAEMIA
     Route: 048
     Dates: start: 20140712, end: 2014
  3. IMMUNOGLOBULIN HUMAN [Concomitant]
     Active Substance: HUMAN IMMUNOGLOBULIN G
     Indication: IMMUNE THROMBOCYTOPENIC PURPURA
  4. LEVOTHYROXINE [Concomitant]
     Active Substance: LEVOTHYROXINE
     Indication: HYPOTHYROIDISM

REACTIONS (14)
  - Sepsis [Unknown]
  - Haemorrhagic anaemia [Unknown]
  - Pancytopenia [Unknown]
  - Staphylococcal infection [Unknown]
  - Gastrointestinal haemorrhage [Unknown]
  - Acute pulmonary oedema [Unknown]
  - Immune thrombocytopenic purpura [Unknown]
  - Disseminated intravascular coagulation [Unknown]
  - Hypovolaemic shock [Fatal]
  - Pulmonary hypertension [Unknown]
  - Generalised oedema [Unknown]
  - Flank pain [Unknown]
  - Acute respiratory failure [Unknown]
  - Pneumonia [Unknown]

NARRATIVE: CASE EVENT DATE: 20141001
